FAERS Safety Report 25646347 (Version 2)
Quarter: 2025Q3

REPORT INFORMATION
  Report Type: Report from Study
  Country: EU (occurrence: EU)
  Receive Date: 20250805
  Receipt Date: 20250901
  Transmission Date: 20251020
  Serious: No
  Sender: TAKEDA
  Company Number: EU-TAKEDA-2023TUS037999

PATIENT
  Sex: Male
  Weight: 60 kg

DRUGS (8)
  1. RURIOCTOCOG ALFA PEGOL [Suspect]
     Active Substance: RURIOCTOCOG ALFA PEGOL
     Indication: Factor VIII deficiency
     Dosage: 34 INTERNATIONAL UNIT, QOD
     Dates: start: 20210706
  2. RURIOCTOCOG ALFA PEGOL [Suspect]
     Active Substance: RURIOCTOCOG ALFA PEGOL
     Indication: Prophylaxis
  3. RURIOCTOCOG ALFA PEGOL [Suspect]
     Active Substance: RURIOCTOCOG ALFA PEGOL
  4. CHOLECALCIFEROL [Concomitant]
     Active Substance: CHOLECALCIFEROL
     Indication: Vitamin D deficiency
     Dosage: 0.05 MILLIGRAM, QD
     Dates: start: 20211014, end: 202206
  5. Lactic acid;Salicylic acid [Concomitant]
     Indication: Skin papilloma
     Dosage: 1.5 UNK, QD
     Route: 061
     Dates: start: 20210715, end: 20211212
  6. IBUPROFEN [Concomitant]
     Active Substance: IBUPROFEN
     Indication: Headache
  7. PFIZER-BIONTECH COVID-19 VACCINE [Concomitant]
     Active Substance: TOZINAMERAN
     Indication: Immunisation
     Dosage: UNK UNK, QD
     Dates: start: 20210806, end: 20210806
  8. PFIZER-BIONTECH COVID-19 VACCINE [Concomitant]
     Active Substance: TOZINAMERAN
     Dosage: UNK UNK, QD
     Dates: start: 20220125, end: 20220125

REACTIONS (3)
  - Attention deficit hyperactivity disorder [Not Recovered/Not Resolved]
  - Affective disorder [Not Recovered/Not Resolved]
  - Road traffic accident [Recovered/Resolved]

NARRATIVE: CASE EVENT DATE: 20230403
